FAERS Safety Report 10365865 (Version 2)
Quarter: 2014Q3

REPORT INFORMATION
  Report Type: Spontaneous
  Country: US (occurrence: US)
  Receive Date: 20140806
  Receipt Date: 20140910
  Transmission Date: 20150326
  Serious: Yes (Other)
  Sender: FDA-Public Use
  Company Number: US-BAYER-2014-112991

PATIENT
  Age: 12 Year
  Sex: Female
  Weight: 35 kg

DRUGS (34)
  1. CLONAZEPAM. [Concomitant]
     Active Substance: CLONAZEPAM
     Dosage: 2 TABLET IN THE MORNING AND 3 TABLET AT BED TIME
     Dates: start: 20140618
  2. VALPROIC ACID [VALPROATE SODIUM] [Concomitant]
     Dosage: UNK
     Route: 050
     Dates: start: 20140602, end: 2014
  3. MIRALAX [Concomitant]
     Active Substance: POLYETHYLENE GLYCOL 3350
     Dosage: UNK, BID
     Route: 050
     Dates: start: 20140812
  4. DULCOLAX [BISACODYL] [Concomitant]
     Dosage: 1 DF DAILY, PRN
     Route: 054
     Dates: start: 20140516
  5. VASOTEC [ENALAPRIL MALEATE] [Concomitant]
     Dosage: 3 MG, BID
     Dates: start: 20140811
  6. ALBUTEROL. [Concomitant]
     Active Substance: ALBUTEROL
     Dosage: 1 AMPOULE, Q4HR
     Route: 045
     Dates: start: 20130903
  7. PRILOSEC [Concomitant]
     Active Substance: OMEPRAZOLE MAGNESIUM
     Dosage: 10 ML, QD
     Dates: start: 20130701
  8. GLYCOPYRROLATE. [Concomitant]
     Active Substance: GLYCOPYRROLATE
     Dosage: 40MCG/KG/DOSE*35KG, BID
     Route: 050
  9. CIPRO [Suspect]
     Active Substance: CIPROFLOXACIN HYDROCHLORIDE
     Indication: URINARY TRACT INFECTION
     Dosage: 500 MG, BID
     Route: 050
     Dates: start: 20140706, end: 20140709
  10. KEFLEX [Concomitant]
     Active Substance: CEPHALEXIN
     Dosage: UNK, QD
     Route: 050
     Dates: start: 20140815
  11. SODIUM POLYSTYRENE SULFONATE. [Concomitant]
     Active Substance: SODIUM POLYSTYRENE SULFONATE
     Dosage: 15 G, QD
     Route: 048
     Dates: start: 20140227
  12. ROCALTROL [Concomitant]
     Active Substance: CALCITRIOL
     Dosage: 0.5 ML, UNK
     Dates: start: 20130205
  13. KEPPRA [Concomitant]
     Active Substance: LEVETIRACETAM
     Dosage: UNK UNK, BID
     Route: 048
     Dates: start: 20140812
  14. PREVACID [Concomitant]
     Active Substance: LANSOPRAZOLE
     Dosage: 30 MG, QD
     Route: 048
     Dates: start: 20140813
  15. PULMICORT TURBUHALER [Concomitant]
     Active Substance: BUDESONIDE
     Dosage: 1 DF, BID
     Route: 045
     Dates: start: 20140404
  16. REGLAN [Concomitant]
     Active Substance: METOCLOPRAMIDE HYDROCHLORIDE
     Dosage: 2.5 ML, QID
     Route: 048
     Dates: start: 20140305, end: 2014
  17. REGLAN [Concomitant]
     Active Substance: METOCLOPRAMIDE HYDROCHLORIDE
     Dosage: 0.1MG/KG/DOSE*35KG, QID
     Route: 048
     Dates: start: 20140812
  18. DRISDOL [Concomitant]
     Active Substance: ERGOCALCIFEROL
     Dosage: 2.5 ML, OW
     Route: 048
     Dates: start: 20140618
  19. PAEDIALYTE [Concomitant]
     Dosage: 125 CC, BID
     Route: 048
     Dates: start: 20130216
  20. FUROSEMIDE [FUROSEMIDE] [Concomitant]
     Dosage: 20 MG, QD
     Route: 042
     Dates: start: 20140815
  21. MIRALAX [Concomitant]
     Active Substance: POLYETHYLENE GLYCOL 3350
     Dosage: 8.5 G MIXED WITH 6-8OZ OF FLUID VIA G-TUBE, PRN
     Dates: start: 20140617, end: 2014
  22. VALPROIC ACID [VALPROATE SODIUM] [Concomitant]
     Dosage: UNK, BID
     Route: 048
     Dates: start: 20140812
  23. DIAZEPAM. [Concomitant]
     Active Substance: DIAZEPAM
     Dosage: UNK
     Dates: start: 20130903
  24. MORPHINE SULPHATE [Concomitant]
     Active Substance: MORPHINE SULFATE
     Dosage: 2 MG, TID
     Route: 048
     Dates: start: 20140813
  25. ACETAMINOPHEN. [Concomitant]
     Active Substance: ACETAMINOPHEN
     Dosage: 15MG/KG/DOSE*35, EVERY 6 HOURS PRN
     Route: 050
     Dates: start: 20140812
  26. BENADRYL ALLERGY [DIPHENHYDRAMINE HYDROCHLORIDE] [Concomitant]
     Dosage: UNK
     Route: 050
     Dates: start: 20140529
  27. LEVETIRACETAM. [Concomitant]
     Active Substance: LEVETIRACETAM
     Dosage: 8 ML, BID
     Route: 048
     Dates: start: 20130829
  28. ISRADIPINE. [Concomitant]
     Active Substance: ISRADIPINE
     Dosage: 0.15MG/KG/DOSE*35, EVERY EIGHT HOUR PRN
     Route: 050
     Dates: start: 20140814
  29. ATIVAN [Concomitant]
     Active Substance: LORAZEPAM
     Dosage: 2 MG, EVERY 2 HOUR PRN
     Route: 042
     Dates: start: 20140810
  30. VASOTEC [ENALAPRIL MALEATE] [Concomitant]
     Dosage: 3 ML, BID
     Route: 048
     Dates: start: 20140430, end: 2014
  31. KEFLEX [Concomitant]
     Active Substance: CEPHALEXIN
     Dosage: 6 ML, UNK
     Route: 050
     Dates: start: 20140428, end: 2014
  32. HYDROCORTONE [HYDROCORTISONE] [Concomitant]
     Dosage: UNK UNK, BID
     Route: 061
     Dates: start: 20140414
  33. CYTRA-2 [Concomitant]
     Active Substance: CITRIC ACID MONOHYDRATE\TRISODIUM CITRATE DIHYDRATE
     Dosage: 8 ML, 5ID
     Dates: start: 20131021
  34. LORAZEPAM. [Concomitant]
     Active Substance: LORAZEPAM
     Dosage: 2 MG, QID
     Route: 050
     Dates: start: 20140810

REACTIONS (5)
  - Intestinal obstruction [Recovering/Resolving]
  - Vomiting [Recovering/Resolving]
  - Wrong technique in drug usage process [None]
  - Gastrointestinal obstruction [Recovering/Resolving]
  - Bezoar [Recovering/Resolving]

NARRATIVE: CASE EVENT DATE: 20140725
